FAERS Safety Report 8901978 (Version 1)
Quarter: 2012Q4

REPORT INFORMATION
  Report Type: 
  Country: US (occurrence: US)
  Receive Date: 20121112
  Receipt Date: 20121112
  Transmission Date: 20130627
  Serious: Yes (Hospitalization)
  Sender: FDA-Public Use
  Company Number: US-BAYER-2012-116585

PATIENT
  Age: 28 Year
  Sex: Female
  Weight: 59.86 kg

DRUGS (10)
  1. YASMIN [Suspect]
  2. LORTAB [Concomitant]
  3. CYCLOBENZAPRINE [Concomitant]
     Indication: MUSCLE SPASM
     Dosage: 10 mg, UNK
  4. IBUPROFEN [Concomitant]
     Dosage: 2-4 tabs 3 [times] per day
  5. ULTRACET [Concomitant]
  6. FLEXERIL [Concomitant]
     Indication: MUSCLE SPASMS
  7. LEVAQUIN [Concomitant]
  8. HYDROMORPHONE [Concomitant]
  9. MORPHINE SULFATE [Concomitant]
     Indication: PAIN
  10. OXYCODONE W/PARACETAMOL [Concomitant]
     Indication: PAIN

REACTIONS (1)
  - Pulmonary embolism [Recovered/Resolved]
